FAERS Safety Report 4993060-0 (Version None)
Quarter: 2006Q1

REPORT INFORMATION
  Report Type: 
  Country: None (occurrence: None)
  Receive Date: 20060313
  Receipt Date: 20060125
  Transmission Date: 20060701
  Serious: No
  Sender: FDA-Public Use
  Company Number: 2005-BP-21580BP

PATIENT
  Age: 72 Year
  Sex: Male

DRUGS (6)
  1. SPIRIVA [Suspect]
     Indication: ASTHMA
     Dosage: 18 MCG (18 MCG, 1 IN 1 D), IH
     Dates: start: 20020101
  2. SPIRIVA [Suspect]
  3. ADVAIR (SERETIDE) [Concomitant]
  4. ZANTAC [Concomitant]
  5. ASMANEX TWISTHALER [Concomitant]
  6. RANITIDINE [Concomitant]

REACTIONS (1)
  - DYSGEUSIA [None]
